FAERS Safety Report 23976350 (Version 1)
Quarter: 2024Q2

REPORT INFORMATION
  Report Type: Spontaneous
  Country: US (occurrence: None)
  Receive Date: 20240613
  Receipt Date: 20240613
  Transmission Date: 20240717
  Serious: Yes (Death)
  Sender: FDA-Public Use
  Company Number: None

PATIENT
  Age: 65 Year
  Sex: Male

DRUGS (11)
  1. DUPIXENT [Suspect]
     Active Substance: DUPILUMAB
     Indication: Asthma
     Dosage: OTHER FREQUENCY : EVERY 2 WEEK;?
     Route: 058
     Dates: start: 20230703, end: 20240606
  2. DULOXETINE [Concomitant]
     Active Substance: DULOXETINE
  3. CLONZAEPAM [Concomitant]
  4. DALIRESP [Concomitant]
     Active Substance: ROFLUMILAST
  5. LEVETIRACETAM [Concomitant]
     Active Substance: LEVETIRACETAM
  6. LOVASTATIN [Concomitant]
     Active Substance: LOVASTATIN
  7. PHENYTOIN [Concomitant]
     Active Substance: PHENYTOIN
  8. ROPINIROLE [Concomitant]
     Active Substance: ROPINIROLE
  9. SEROQUEL [Concomitant]
     Active Substance: QUETIAPINE FUMARATE
  10. SPIRIVA [Concomitant]
     Active Substance: TIOTROPIUM BROMIDE MONOHYDRATE
  11. SYMBICORT [Concomitant]
     Active Substance: BUDESONIDE\FORMOTEROL FUMARATE DIHYDRATE

REACTIONS (1)
  - Death [None]

NARRATIVE: CASE EVENT DATE: 20240606
